FAERS Safety Report 6282832-0 (Version None)
Quarter: 2009Q3

REPORT INFORMATION
  Report Type: 
  Country: None (occurrence: None)
  Receive Date: 20090722
  Receipt Date: 20090722
  Transmission Date: 20100115
  Serious: Yes (Life-Threatening, Other)
  Sender: FDA-Public Use
  Company Number: None

PATIENT
  Age: 17 Year
  Sex: Female
  Weight: 34.4734 kg

DRUGS (2)
  1. ZOLOFT [Suspect]
     Indication: OBSESSIVE-COMPULSIVE DISORDER
     Dosage: 1 AND 1/2 , 1 MORNING, EVENING PO
     Route: 048
     Dates: start: 20090215
  2. ZOLOFT [Suspect]
     Indication: OBSESSIVE-COMPULSIVE DISORDER
     Dosage: 1 AND 1/2 , 1 MORNING, EVENING PO
     Route: 048
     Dates: start: 20090721

REACTIONS (7)
  - DECREASED ACTIVITY [None]
  - HAEMORRHAGE [None]
  - INCORRECT DOSE ADMINISTERED [None]
  - INTENTIONAL SELF-INJURY [None]
  - NAIL PICKING [None]
  - SCRATCH [None]
  - UNRESPONSIVE TO STIMULI [None]
